FAERS Safety Report 17807859 (Version 1)
Quarter: 2020Q2

REPORT INFORMATION
  Report Type: Spontaneous
  Country: US (occurrence: US)
  Receive Date: 20200520
  Receipt Date: 20200520
  Transmission Date: 20200714
  Serious: Yes (Other)
  Sender: FDA-Public Use
  Company Number: None

PATIENT
  Age: 64 Year
  Sex: Male
  Weight: 98.1 kg

DRUGS (7)
  1. ACID REDUCER COMPLETE [Concomitant]
     Active Substance: CALCIUM CARBONATE\FAMOTIDINE\MAGNESIUM HYDROXIDE
  2. MAGNESIUM [Concomitant]
     Active Substance: MAGNESIUM
  3. WALKER [Concomitant]
  4. VITAMIN D [Concomitant]
     Active Substance: VITAMIN D NOS
  5. OXYCODONE/ACETAMINIPHEN 10/325 [Suspect]
     Active Substance: ACETAMINOPHEN\OXYCODONE HYDROCHLORIDE
     Indication: POLYARTHRITIS
     Dosage: ?          QUANTITY:180 TABLET(S);?
     Route: 048
     Dates: start: 20200518, end: 20200518
  6. ANTI GAS [Concomitant]
  7. CANES [Concomitant]

REACTIONS (6)
  - Product substitution issue [None]
  - Fatigue [None]
  - Inability to afford medication [None]
  - Sphincter of Oddi dysfunction [None]
  - Dizziness [None]
  - Product complaint [None]

NARRATIVE: CASE EVENT DATE: 20200518
